FAERS Safety Report 4940518-6 (Version None)
Quarter: 2006Q1

REPORT INFORMATION
  Report Type: 
  Country: None (occurrence: None)
  Receive Date: 20060112
  Receipt Date: 20051107
  Transmission Date: 20060701
  Serious: Yes (Other)
  Sender: FDA-Public Use
  Company Number: 423947

PATIENT
  Age: 36 Year
  Sex: Male

DRUGS (3)
  1. FUZEON [Suspect]
     Indication: HIV INFECTION
     Dosage: 90 MG 2 PER DAY SUBCUTANEOUS
     Route: 058
     Dates: start: 20041201
  2. KALETRA [Concomitant]
  3. INVIRASE [Concomitant]

REACTIONS (3)
  - CONTUSION [None]
  - INJECTION SITE REACTION [None]
  - PERIORBITAL HAEMATOMA [None]
